FAERS Safety Report 5438458-1 (Version None)
Quarter: 2007Q3

REPORT INFORMATION
  Report Type: 
  Country: None (occurrence: None)
  Receive Date: 20070831
  Receipt Date: 20070829
  Transmission Date: 20080115
  Serious: Yes (Hospitalization)
  Sender: FDA-Public Use
  Company Number: US-SANOFI-SYNTHELABO-F01200700981

PATIENT
  Sex: Male
  Weight: 101.8 kg

DRUGS (7)
  1. NEULASTA [Concomitant]
     Dosage: 6 MG EACH CYCLE
  2. LYRICA [Concomitant]
  3. METHADONE HCL [Concomitant]
  4. LISINOPRIL [Concomitant]
  5. BEVACIZUMAB [Suspect]
     Route: 042
     Dates: start: 20070705, end: 20070705
  6. DOCETAXEL [Suspect]
     Route: 042
     Dates: start: 20070726, end: 20070726
  7. OXALIPLATIN [Suspect]
     Indication: LUNG NEOPLASM MALIGNANT
     Route: 042
     Dates: start: 20070726, end: 20070726

REACTIONS (4)
  - ANAEMIA [None]
  - HYPONATRAEMIA [None]
  - LARGE INTESTINE PERFORATION [None]
  - PELVIC ABSCESS [None]
